FAERS Safety Report 7359621-9 (Version None)
Quarter: 2011Q1

REPORT INFORMATION
  Report Type: 
  Country: None (occurrence: None)
  Receive Date: 20110317
  Receipt Date: 20100413
  Transmission Date: 20110831
  Serious: No
  Sender: FDA-Public Use
  Company Number: US-PFIZER INC-2010046740

PATIENT
  Sex: Female
  Weight: 63.5 kg

DRUGS (1)
  1. AMLODIPINE BESYLATE [Suspect]
     Indication: HYPERTENSION
     Dosage: 5 MG, 1X/DAY
     Dates: start: 20090901

REACTIONS (6)
  - LIP SWELLING [None]
  - CHAPPED LIPS [None]
  - PRURITUS [None]
  - FLUSHING [None]
  - DRY MOUTH [None]
  - THIRST [None]
